FAERS Safety Report 5318584-8 (Version None)
Quarter: 2007Q1

REPORT INFORMATION
  Report Type: 
  Country: None (occurrence: None)
  Receive Date: 20070201
  Receipt Date: 20061116
  Transmission Date: 20070707
  Serious: Yes (Other)
  Sender: FDA-Public Use
  Company Number: 2006BL006421

PATIENT
  Age: 57 Year
  Sex: Female

DRUGS (7)
  1. RETISERT [Suspect]
     Indication: UVEITIS
     Dosage: 1 DOSE FORM;ONCE A DAY; LEFT EYE
     Dates: start: 20061030
  2. RETISERT [Suspect]
     Indication: VASCULITIS
     Dosage: 1 DOSE FORM;ONCE A DAY; LEFT EYE
     Dates: start: 20061030
  3. PRED FORTE [Concomitant]
  4. CYCLOSPORINE [Concomitant]
  5. HYDROCHLOROTHIAZIDE [Concomitant]
  6. SYNTHROID [Concomitant]
  7. SCOPOLAMINE [Concomitant]

REACTIONS (1)
  - HYPOTONY OF EYE [None]
